FAERS Safety Report 24432984 (Version 1)
Quarter: 2024Q4

REPORT INFORMATION
  Report Type: Spontaneous
  Country: CA (occurrence: CA)
  Receive Date: 20241014
  Receipt Date: 20241014
  Transmission Date: 20250115
  Serious: Yes (Hospitalization, Other)
  Sender: SANDOZ
  Company Number: CA-SANDOZ-SDZ2024CA086677

PATIENT
  Age: 54 Year
  Sex: Male

DRUGS (16)
  1. CAMZYOS [Suspect]
     Active Substance: MAVACAMTEN
     Dosage: 10.0 MG, QD
     Route: 048
  2. CAMZYOS [Suspect]
     Active Substance: MAVACAMTEN
     Indication: Hypertrophic cardiomyopathy
     Dosage: 5.0 MG, QD
     Route: 048
  3. TELMISARTAN [Suspect]
     Active Substance: TELMISARTAN
     Indication: Product used for unknown indication
     Dosage: 80.00 MG, QD
     Route: 065
  4. ATENOLOL [Concomitant]
     Active Substance: ATENOLOL
     Dosage: 50.0 MG, QD
     Route: 065
  5. ATENOLOL [Concomitant]
     Active Substance: ATENOLOL
     Indication: Product used for unknown indication
     Dosage: 75.0 MG
     Route: 065
  6. CITALOPRAM [Concomitant]
     Active Substance: CITALOPRAM
     Indication: Product used for unknown indication
     Dosage: UNK UNK, QD
     Route: 065
  7. IRON [Concomitant]
     Active Substance: IRON
     Indication: Mineral supplementation
     Route: 065
  8. IRON [Concomitant]
     Active Substance: IRON
     Indication: Mineral supplementation
     Route: 065
  9. LORAZEPAM [Concomitant]
     Active Substance: LORAZEPAM
     Indication: Product used for unknown indication
     Route: 065
  10. LORAZEPAM [Concomitant]
     Active Substance: LORAZEPAM
     Indication: Product used for unknown indication
     Route: 065
  11. MAGNESIUM [Concomitant]
     Active Substance: MAGNESIUM
     Indication: Product used for unknown indication
     Route: 065
  12. MAGNESIUM [Concomitant]
     Active Substance: MAGNESIUM
     Indication: Product used for unknown indication
     Route: 065
  13. SIMVASTATIN [Concomitant]
     Active Substance: SIMVASTATIN
     Indication: Product used for unknown indication
     Dosage: UNK, QD
     Route: 065
  14. VITAMINS NOS [Concomitant]
     Active Substance: VITAMINS
     Indication: Product used for unknown indication
     Route: 065
  15. VITAMINS NOS [Concomitant]
     Active Substance: VITAMINS
     Indication: Product used for unknown indication
     Route: 065
  16. ZOPICLONE [Concomitant]
     Active Substance: ZOPICLONE
     Indication: Product used for unknown indication
     Route: 065

REACTIONS (4)
  - Atrial fibrillation [Recovered/Resolved]
  - Panic reaction [Recovered/Resolved]
  - Stress [Recovered/Resolved]
  - Dizziness [Recovered/Resolved]
